FAERS Safety Report 10447669 (Version 1)
Quarter: 2014Q3

REPORT INFORMATION
  Report Type: Spontaneous
  Country: US (occurrence: None)
  Receive Date: 20140910
  Receipt Date: 20140910
  Transmission Date: 20150326
  Serious: Yes (Hospitalization)
  Sender: FDA-Public Use
  Company Number: None

PATIENT
  Age: 69 Year
  Sex: Male
  Weight: 98 kg

DRUGS (2)
  1. BEVACIZUMAB [Suspect]
     Active Substance: BEVACIZUMAB
     Dosage: SECOND DOSE ON PROTOCOL WAS PLANNED FOR 9/3/2014, BUT WAS HELD DUE TO HOSPITALIZATION .
     Dates: end: 20140820
  2. QUETIAPINE FUMARATE. [Concomitant]
     Active Substance: QUETIAPINE FUMARATE

REACTIONS (11)
  - Tachycardia [None]
  - Hypokinesia [None]
  - Fatigue [None]
  - Blood pressure decreased [None]
  - Somnolence [None]
  - Hallucination [None]
  - Mental status changes [None]
  - Confusional state [None]
  - Blood iron decreased [None]
  - Unresponsive to stimuli [None]
  - Haemoglobin decreased [None]

NARRATIVE: CASE EVENT DATE: 20140902
